FAERS Safety Report 20051244 (Version 2)
Quarter: 2021Q4

REPORT INFORMATION
  Report Type: Other
  Country: JP (occurrence: JP)
  Receive Date: 20211110
  Receipt Date: 20211118
  Transmission Date: 20220303
  Serious: Yes (Other)
  Sender: FDA-Public Use
  Company Number: JP-CHUGAI-2021026005

PATIENT
  Age: 68 Year
  Sex: Male

DRUGS (2)
  1. TECENTRIQ [Suspect]
     Active Substance: ATEZOLIZUMAB
     Indication: Non-small cell lung cancer
     Route: 041
  2. INSULIN NOS [Concomitant]
     Active Substance: INSULIN NOS
     Indication: Pancreatogenous diabetes
     Route: 065

REACTIONS (1)
  - Secondary adrenocortical insufficiency [Unknown]
